FAERS Safety Report 7899755-3 (Version None)
Quarter: 2011Q4

REPORT INFORMATION
  Report Type: 
  Country: None (occurrence: None)
  Receive Date: 20111107
  Receipt Date: 20110919
  Transmission Date: 20120403
  Serious: No
  Sender: FDA-Public Use
  Company Number: US-AMGEN-USASP2011048428

PATIENT
  Age: 63 Year
  Sex: Female
  Weight: 92.971 kg

DRUGS (6)
  1. PREDNISONE [Concomitant]
     Dosage: 1 MG, UNK
  2. FOLIC ACID [Concomitant]
     Dosage: 1 MG, UNK
  3. PRILOSEC [Concomitant]
     Dosage: 10 MG, UNK
  4. ENBREL [Suspect]
     Indication: PRODUCT USED FOR UNKNOWN INDICATION
     Dosage: 50 MG, QWK
  5. MULTIVITAMIN                       /00097801/ [Concomitant]
  6. METHOTREXATE [Concomitant]
     Dosage: 2.5 MG, UNK

REACTIONS (3)
  - TINNITUS [None]
  - NIGHT SWEATS [None]
  - PYREXIA [None]
